FAERS Safety Report 8707936 (Version 3)
Quarter: 2013Q3

REPORT INFORMATION
  Report Type: Spontaneous
  Country: GB (occurrence: GB)
  Receive Date: 20120806
  Receipt Date: 20130930
  Transmission Date: 20140515
  Serious: Yes (Hospitalization, Other)
  Sender: FDA-Public Use
  Company Number: GB-009507513-1207GBR009670

PATIENT
  Sex: Male
  Weight: 40 kg

DRUGS (2)
  1. BRIDION [Suspect]
     Indication: NEUROMUSCULAR BLOCKADE REVERSAL
  2. ESMERON [Suspect]
     Indication: MUSCLE RELAXANT THERAPY

REACTIONS (2)
  - Muscle twitching [Recovered/Resolved]
  - Recurrence of neuromuscular blockade [Recovered/Resolved]
